FAERS Safety Report 8336993-X (Version None)
Quarter: 2012Q2

REPORT INFORMATION
  Report Type: 
  Country: None (occurrence: None)
  Receive Date: 20120501
  Receipt Date: 20120418
  Transmission Date: 20120825
  Serious: Yes (Other)
  Sender: FDA-Public Use
  Company Number: AUR-APL-2012-01986

PATIENT
  Age: 50 Year
  Sex: Male
  Weight: 75 kg

DRUGS (4)
  1. ALPRAZOLAM [Concomitant]
  2. ZOLOFT [Suspect]
     Indication: PRODUCT USED FOR UNKNOWN INDICATION
     Dosage: SEE IMAGE
     Route: 048
  3. LITHIUM CARBONATE [Concomitant]
  4. PAROXETINE HCL [Suspect]
     Indication: PRODUCT USED FOR UNKNOWN INDICATION

REACTIONS (8)
  - DEPRESSION [None]
  - DIABETIC COMPLICATION [None]
  - GENERALISED ANXIETY DISORDER [None]
  - INCORRECT DOSE ADMINISTERED [None]
  - DISEASE RECURRENCE [None]
  - SURGERY [None]
  - RETIREMENT [None]
  - NO THERAPEUTIC RESPONSE [None]
